FAERS Safety Report 12481858 (Version 6)
Quarter: 2017Q3

REPORT INFORMATION
  Report Type: Report from Study
  Country: None (occurrence: US)
  Receive Date: 20160620
  Receipt Date: 20170727
  Transmission Date: 20171127
  Serious: Yes (Hospitalization, Other)
  Sender: FDA-Public Use
  Company Number: US-ABBVIE-16K-163-1651736-00

PATIENT
  Age: 68 Year
  Sex: Male
  Weight: 73.55 kg

DRUGS (10)
  1. CANASA [Concomitant]
     Active Substance: MESALAMINE
     Indication: PRODUCT USED FOR UNKNOWN INDICATION
  2. LISINOPRIL. [Concomitant]
     Active Substance: LISINOPRIL
     Indication: PRODUCT USED FOR UNKNOWN INDICATION
  3. HUMIRA [Suspect]
     Active Substance: ADALIMUMAB
     Indication: CROHN^S DISEASE
     Route: 058
     Dates: start: 2011, end: 201601
  4. OXYCODONE [Concomitant]
     Active Substance: OXYCODONE
     Indication: PRODUCT USED FOR UNKNOWN INDICATION
  5. VITAMIN B12 [Concomitant]
     Active Substance: CYANOCOBALAMIN
     Indication: PRODUCT USED FOR UNKNOWN INDICATION
  6. HUMIRA [Suspect]
     Active Substance: ADALIMUMAB
     Route: 058
  7. OMEPRAZOLE. [Concomitant]
     Active Substance: OMEPRAZOLE
     Indication: PRODUCT USED FOR UNKNOWN INDICATION
  8. METOPROLOL. [Concomitant]
     Active Substance: METOPROLOL
     Indication: PRODUCT USED FOR UNKNOWN INDICATION
  9. PREDNISONE. [Concomitant]
     Active Substance: PREDNISONE
     Indication: PRODUCT USED FOR UNKNOWN INDICATION
  10. ASACOL [Concomitant]
     Active Substance: MESALAMINE
     Indication: PRODUCT USED FOR UNKNOWN INDICATION

REACTIONS (18)
  - Abscess intestinal [Recovering/Resolving]
  - Gastrointestinal haemorrhage [Recovered/Resolved]
  - Procedural intestinal perforation [Recovering/Resolving]
  - Large intestinal obstruction [Unknown]
  - Abscess intestinal [Recovered/Resolved]
  - Fistula of small intestine [Recovered/Resolved]
  - Pneumonia staphylococcal [Recovered/Resolved]
  - Stress [Unknown]
  - Post procedural myocardial infarction [Recovering/Resolving]
  - Post procedural infection [Not Recovered/Not Resolved]
  - Fatigue [Not Recovered/Not Resolved]
  - Intestinal fistula [Recovering/Resolving]
  - Infectious colitis [Unknown]
  - Tremor [Recovered/Resolved with Sequelae]
  - Intestinal anastomosis [Recovering/Resolving]
  - Large intestinal obstruction [Recovered/Resolved]
  - Crohn^s disease [Not Recovered/Not Resolved]
  - Drug effect incomplete [Not Recovered/Not Resolved]

NARRATIVE: CASE EVENT DATE: 201512
